FAERS Safety Report 4716588-7 (Version None)
Quarter: 2005Q3

REPORT INFORMATION
  Report Type: 
  Country: None (occurrence: None)
  Receive Date: 20050718
  Receipt Date: 20050706
  Transmission Date: 20060218
  Serious: Yes (Other)
  Sender: FDA-Public Use
  Company Number: 05-07-1174

PATIENT
  Age: 22 Year
  Sex: Female
  Weight: 65 kg

DRUGS (18)
  1. RANITIDINE [Suspect]
     Dosage: 300MG ORAL
     Route: 048
  2. REMIFENTANIL UNKNOWN [Suspect]
     Dosage: 2-4MCG/KG
  3. METOCLOPRAMIDE UNKNOWN [Suspect]
     Dosage: 10MG
  4. SUXAMETHONIUM [Suspect]
     Dosage: 1.5MG/KG
  5. SODIUM CITRATE UNKNOWN [Suspect]
  6. ETOMIDATE UNKNOWN [Suspect]
     Dosage: 0.1-0.2MG/KG
  7. ISOFLURANE UNKNOWN [Suspect]
     Dosage: 1-2% INHALATION
     Route: 055
  8. NITROUS OXIDE UNKNOWN [Suspect]
     Dosage: INHALATION
     Route: 055
  9. OXYGEN UNKNOWN [Suspect]
     Dosage: INHALALTION
     Route: 055
  10. VECURONIUM BROMIDE UNKNOWN [Suspect]
     Dosage: 0.1MG/KG
  11. MORPHINE [Concomitant]
  12. ACETAMINOPHEN [Concomitant]
  13. GLYCOPYRRONIUM BROMIDE [Concomitant]
  14. DICLOFENAC SODIUM [Concomitant]
  15. GENTAMICIN [Concomitant]
  16. CEFUROXIME [Concomitant]
  17. OXYTOCIN [Concomitant]
  18. METARAMINOL [Concomitant]

REACTIONS (1)
  - DRUG EXPOSURE DURING PREGNANCY [None]
